FAERS Safety Report 15238977 (Version 1)
Quarter: 2018Q3

REPORT INFORMATION
  Report Type: Spontaneous
  Country: US (occurrence: US)
  Receive Date: 20180803
  Receipt Date: 20180803
  Transmission Date: 20181010
  Serious: No
  Sender: FDA-Public Use
  Company Number: US-ENDO PHARMACEUTICALS INC-2017-005961

PATIENT
  Sex: Male
  Weight: 113 kg

DRUGS (25)
  1. ASPIRIN EC [Concomitant]
     Active Substance: ASPIRIN
     Indication: CARDIAC DISORDER
  2. FLONASE [Concomitant]
     Active Substance: FLUTICASONE PROPIONATE
     Indication: HYPERSENSITIVITY
  3. CLOBETASOL [Concomitant]
     Active Substance: CLOBETASOL
     Indication: PSORIASIS
  4. TRIAMCINOLONE ACETONIDE CREAM 0.1 [Concomitant]
     Active Substance: TRIAMCINOLONE ACETONIDE
     Indication: PSORIASIS
  5. LISINOPRIL AND HYDROCHLOROTHIAZIDE [Concomitant]
     Active Substance: HYDROCHLOROTHIAZIDE\LISINOPRIL
     Indication: OEDEMA
  6. OMEPRAZOLE MAGNESIUM. [Concomitant]
     Active Substance: OMEPRAZOLE MAGNESIUM
     Indication: BARRETT^S OESOPHAGUS
  7. NIACIN. [Concomitant]
     Active Substance: NIACIN
     Indication: PRODUCT USED FOR UNKNOWN INDICATION
  8. PREDNISONE TABLETS [Suspect]
     Active Substance: PREDNISONE
     Indication: INTERVERTEBRAL DISC PROTRUSION
     Dosage: 60 MG, DAILY
     Route: 065
     Dates: start: 1992, end: 1992
  9. ACIDOPHILUS [Concomitant]
     Active Substance: LACTOBACILLUS ACIDOPHILUS
     Indication: CONSTIPATION
  10. LIDODERM [Concomitant]
     Active Substance: LIDOCAINE
     Indication: BACK PAIN
  11. IBUPROFEN TABLETS [Concomitant]
     Active Substance: IBUPROFEN
     Indication: BACK PAIN
  12. LIDODERM [Concomitant]
     Active Substance: LIDOCAINE
     Indication: MUSCULOSKELETAL PAIN
  13. AMLODIPINE BESYLATE TABLETS 5MG [Concomitant]
     Active Substance: AMLODIPINE BESYLATE
     Indication: HYPERTENSION
  14. KLOR?CON [Concomitant]
     Active Substance: POTASSIUM CHLORIDE
     Indication: MINERAL SUPPLEMENTATION
  15. VITAMIN B [Concomitant]
     Active Substance: VITAMIN B
     Indication: SUPPLEMENTATION THERAPY
  16. VITAMINS WITH MINERALS [Concomitant]
     Active Substance: MINERALS\VITAMINS
     Indication: PRODUCT USED FOR UNKNOWN INDICATION
  17. PSEUDOEPHEDRINE [Concomitant]
     Active Substance: PSEUDOEPHEDRINE
     Indication: PRODUCT USED FOR UNKNOWN INDICATION
  18. HYDROCODONE BITARTRATE AND ACETAMINOPHEN [Concomitant]
     Active Substance: ACETAMINOPHEN\HYDROCODONE BITARTRATE
     Indication: BACK PAIN
  19. OSTEO BI?FLEX                      /07995901/ [Concomitant]
     Indication: PRODUCT USED FOR UNKNOWN INDICATION
  20. SOMA [Suspect]
     Active Substance: CARISOPRODOL
     Indication: PRODUCT USED FOR UNKNOWN INDICATION
  21. LISINOPRIL AND HYDROCHLOROTHIAZIDE [Concomitant]
     Active Substance: HYDROCHLOROTHIAZIDE\LISINOPRIL
     Indication: HYPERTENSION
  22. BENADRYL [Concomitant]
     Active Substance: DIPHENHYDRAMINE HYDROCHLORIDE
     Indication: PSORIASIS
  23. ZINC. [Concomitant]
     Active Substance: ZINC
     Indication: PSORIASIS
  24. TIZANIDINE HYDROCHLORIDE. [Concomitant]
     Active Substance: TIZANIDINE HYDROCHLORIDE
     Indication: MUSCLE RELAXANT THERAPY
  25. GABAPENTIN. [Concomitant]
     Active Substance: GABAPENTIN
     Indication: CARPAL TUNNEL SYNDROME

REACTIONS (1)
  - Tachycardia [Recovered/Resolved]

NARRATIVE: CASE EVENT DATE: 1992
